FAERS Safety Report 5318940-8 (Version None)
Quarter: 2007Q1

REPORT INFORMATION
  Report Type: 
  Country: None (occurrence: None)
  Receive Date: 20070202
  Receipt Date: 20060307
  Transmission Date: 20070707
  Serious: Yes (Hospitalization)
  Sender: FDA-Public Use
  Company Number: 247387

PATIENT
  Age: 42 Year
  Sex: Male
  Weight: 81.6 kg

DRUGS (4)
  1. NOVOLOG [Suspect]
     Indication: DIABETES MELLITUS INSULIN-DEPENDENT
     Dosage: SEE IMAGE
     Route: 058
     Dates: start: 20041101, end: 20050930
  2. NOVOLOG [Suspect]
     Indication: DIABETES MELLITUS INSULIN-DEPENDENT
     Dosage: SEE IMAGE
     Route: 058
     Dates: start: 20051001
  3. ZOCOR [Concomitant]
  4. MINIMED MEDTRONIC 715 INSULIN PUMP [Concomitant]

REACTIONS (1)
  - DIABETIC KETOACIDOSIS [None]
